FAERS Safety Report 6643491-8 (Version None)
Quarter: 2010Q1

REPORT INFORMATION
  Report Type: 
  Country: None (occurrence: None)
  Receive Date: 20100319
  Receipt Date: 20100310
  Transmission Date: 20100710
  Serious: Yes (Hospitalization, Other)
  Sender: FDA-Public Use
  Company Number: US-AMGEN-QUU384242

PATIENT
  Sex: Male
  Weight: 36.3 kg

DRUGS (17)
  1. ARANESP [Suspect]
     Indication: RENAL FAILURE CHRONIC
  2. NORVASC [Concomitant]
  3. CLONIDINE [Concomitant]
     Route: 062
  4. FLOVENT [Concomitant]
  5. PREVACID [Concomitant]
  6. REGLAN [Concomitant]
  7. SINGULAIR [Concomitant]
  8. CELLCEPT [Concomitant]
  9. TRILEPTAL [Concomitant]
  10. PREDNISONE [Concomitant]
  11. PRAVASTATIN [Concomitant]
  12. SODIUM BICARBONATE [Concomitant]
  13. PROGRAF [Concomitant]
  14. MULTIVITAMINS AND IRON [Concomitant]
  15. TUMS [Concomitant]
  16. NASONEX [Concomitant]
  17. DOXERCALCIFEROL [Concomitant]

REACTIONS (4)
  - ANAEMIA [None]
  - APLASIA PURE RED CELL [None]
  - APLASTIC ANAEMIA [None]
  - PANEL-REACTIVE ANTIBODY [None]
